APPROVED DRUG PRODUCT: OXISTAT
Active Ingredient: OXICONAZOLE NITRATE
Strength: EQ 1% BASE
Dosage Form/Route: CREAM;TOPICAL
Application: N019828 | Product #001 | TE Code: AB
Applicant: FOUGERA PHARMACEUTICALS INC
Approved: Dec 30, 1988 | RLD: Yes | RS: Yes | Type: RX